FAERS Safety Report 13383809 (Version 3)
Quarter: 2017Q3

REPORT INFORMATION
  Report Type: Spontaneous
  Country: KR (occurrence: KR)
  Receive Date: 20170329
  Receipt Date: 20170725
  Transmission Date: 20171127
  Serious: Yes (Hospitalization)
  Sender: FDA-Public Use
  Company Number: KR-009507513-1703KOR011968

PATIENT
  Age: 71 Year
  Sex: Male
  Weight: 62.7 kg

DRUGS (83)
  1. SOLONDO [Concomitant]
     Active Substance: PREDNISOLONE
     Indication: PROPHYLAXIS OF NAUSEA AND VOMITING
     Dosage: 100 MG, QD
     Route: 048
     Dates: start: 20170309, end: 20170313
  2. KUNWONG ACETAMINOPHEN [Concomitant]
     Dosage: 600 MG, QID
     Route: 048
     Dates: start: 20161212, end: 20161212
  3. KUNWONG ACETAMINOPHEN [Concomitant]
     Dosage: 600 MG, QID
     Route: 048
     Dates: start: 20170309, end: 20170309
  4. ZYLORIC [Concomitant]
     Active Substance: ALLOPURINOL
     Dosage: 100 MG, BID
     Route: 048
     Dates: start: 20170102, end: 20170108
  5. LASIX [Concomitant]
     Active Substance: FUROSEMIDE
     Indication: PROPHYLAXIS
     Dosage: 40 MG, QD
     Route: 048
     Dates: start: 20170309, end: 20170313
  6. LASIX [Concomitant]
     Active Substance: FUROSEMIDE
     Dosage: 40 MG, QD
     Route: 048
     Dates: start: 20170216, end: 20170220
  7. NEULASTA [Concomitant]
     Active Substance: PEGFILGRASTIM
     Dosage: PREFILLED SYRINGE, 6 MG, ONCE
     Route: 058
     Dates: start: 20170124, end: 20170124
  8. PARIET [Concomitant]
     Active Substance: RABEPRAZOLE SODIUM
     Indication: PROPHYLAXIS
     Dosage: 10 MG, QD
     Route: 048
     Dates: start: 20161111
  9. EMEND (FOSAPREPITANT DIMEGLUMINE) [Suspect]
     Active Substance: FOSAPREPITANT DIMEGLUMINE
     Dosage: 150 MG, ONCE
     Route: 042
     Dates: start: 20170124, end: 20170124
  10. ILDON G ADRIAMYCIN [Concomitant]
     Dosage: 63 MG, ONCE; CYCLE 2
     Route: 042
     Dates: start: 20161212, end: 20161212
  11. MABTHERA [Concomitant]
     Active Substance: RITUXIMAB
     Dosage: 626.25 MG, ONCE; CYCLE 3
     Route: 042
     Dates: start: 20170102, end: 20170102
  12. MABTHERA [Concomitant]
     Active Substance: RITUXIMAB
     Dosage: 641.25 MG, ONCE; CYCLE 5
     Route: 042
     Dates: start: 20170216, end: 20170216
  13. ALOXI [Concomitant]
     Active Substance: PALONOSETRON HYDROCHLORIDE
     Dosage: 0.25 MG, ONCE
     Route: 042
     Dates: start: 20161115, end: 20161115
  14. KUNWONG ACETAMINOPHEN [Concomitant]
     Dosage: 600 MG, QID
     Route: 048
     Dates: start: 20161115, end: 20161115
  15. KUNWONG ACETAMINOPHEN [Concomitant]
     Dosage: 600 MG, QID
     Route: 048
     Dates: start: 20170102, end: 20170102
  16. CARDIOXANE [Concomitant]
     Active Substance: DEXRAZOXANE HYDROCHLORIDE
     Dosage: 500 MG, ONCE
     Route: 042
     Dates: start: 20170124, end: 20170124
  17. CELEBREX [Concomitant]
     Active Substance: CELECOXIB
     Indication: PAIN
     Dosage: 200 MG, QD
     Route: 048
     Dates: start: 20170102
  18. LASIX [Concomitant]
     Active Substance: FUROSEMIDE
     Dosage: 40 MG, QD
     Route: 048
     Dates: start: 20161215, end: 20161219
  19. NEULASTA [Concomitant]
     Active Substance: PEGFILGRASTIM
     Indication: PROPHYLAXIS
     Dosage: PREFILLED SYRINGE, 6 MG, ONCE
     Route: 058
     Dates: start: 20170309, end: 20170309
  20. NEULASTA [Concomitant]
     Active Substance: PEGFILGRASTIM
     Dosage: PREFILLED SYRINGE, 6 MG, ONCE
     Route: 058
     Dates: start: 20170216, end: 20170216
  21. PARAMACET [Concomitant]
     Active Substance: ACETAMINOPHEN\TRAMADOL
     Indication: PAIN
     Dosage: 1 TABLET, TID
     Route: 048
     Dates: start: 20170124
  22. ILDON G ADRIAMYCIN [Concomitant]
     Dosage: 64.13 MG, ONCE; CYCLE 5
     Route: 042
     Dates: start: 20170216, end: 20170216
  23. SOLONDO [Concomitant]
     Active Substance: PREDNISOLONE
     Dosage: 100 MG, QD
     Route: 048
     Dates: start: 20170216, end: 20170220
  24. GALVUS MET [Concomitant]
     Active Substance: METFORMIN HYDROCHLORIDE\VILDAGLIPTIN
     Indication: DIABETES MELLITUS
     Dosage: 1 TABLET, BID
     Route: 048
  25. GASMOTIN [Concomitant]
     Active Substance: MOSAPRIDE CITRATE
     Dosage: 5 MG, TID
     Route: 048
     Dates: start: 20170216, end: 20170216
  26. NEULASTA [Concomitant]
     Active Substance: PEGFILGRASTIM
     Dosage: PREFILLED SYRINGE, 6 MG, ONCE
     Route: 058
     Dates: start: 20161115, end: 20161115
  27. TRAJENTA DUO [Concomitant]
     Active Substance: LINAGLIPTIN\METFORMIN HYDROCHLORIDE
     Indication: DIABETES MELLITUS
     Dosage: 1 TABLET, BID
     Route: 048
  28. SEPTRIN [Concomitant]
     Active Substance: SULFAMETHOXAZOLE\TRIMETHOPRIM
     Indication: PROPHYLAXIS
     Dosage: 400 MG, QD
     Route: 048
     Dates: start: 20161115
  29. ILDON G ADRIAMYCIN [Concomitant]
     Indication: CHEMOTHERAPY
     Dosage: 64.13 MG, ONCE; CYCLE 6
     Route: 042
     Dates: start: 20170309, end: 20170309
  30. ENDOXAN [Concomitant]
     Active Substance: CYCLOPHOSPHAMIDE
     Dosage: 967.5 MG, ONCE; CYCLE 1
     Route: 042
     Dates: start: 20161115, end: 20161115
  31. ENDOXAN [Concomitant]
     Active Substance: CYCLOPHOSPHAMIDE
     Dosage: 945 MG, ONCE; CYCLE 2
     Route: 042
     Dates: start: 20161212, end: 20161212
  32. SOLONDO [Concomitant]
     Active Substance: PREDNISOLONE
     Dosage: 100 MG, QD
     Route: 048
     Dates: start: 20170102, end: 20170106
  33. SOLONDO [Concomitant]
     Active Substance: PREDNISOLONE
     Dosage: 100 MG, QD
     Route: 048
     Dates: start: 20170124, end: 20170128
  34. ALOXI [Concomitant]
     Active Substance: PALONOSETRON HYDROCHLORIDE
     Dosage: 0.25 MG, ONCE
     Route: 042
     Dates: start: 20170102, end: 20170102
  35. ALOXI [Concomitant]
     Active Substance: PALONOSETRON HYDROCHLORIDE
     Dosage: 0.25 MG, ONCE
     Route: 042
     Dates: start: 20170216, end: 20170216
  36. CARDIOXANE [Concomitant]
     Active Substance: DEXRAZOXANE HYDROCHLORIDE
     Dosage: 500 MG, ONCE
     Route: 042
     Dates: start: 20170216, end: 20170216
  37. DIAMICRON MR [Concomitant]
     Active Substance: GLICLAZIDE
     Indication: DIABETES MELLITUS
     Dosage: 30 MG, QD
     Route: 048
  38. GASMOTIN [Concomitant]
     Active Substance: MOSAPRIDE CITRATE
     Dosage: 5 MG, TID
     Route: 048
     Dates: start: 20170102, end: 20170108
  39. NEULASTA [Concomitant]
     Active Substance: PEGFILGRASTIM
     Dosage: PREFILLED SYRINGE, 6 MG, ONCE
     Route: 058
     Dates: start: 20161213, end: 20161213
  40. NEULASTA [Concomitant]
     Active Substance: PEGFILGRASTIM
     Dosage: PREFILLED SYRINGE, 6 MG, ONCE
     Route: 058
     Dates: start: 20170102, end: 20170102
  41. ILDON G ADRIAMYCIN [Concomitant]
     Dosage: 63.38 MG, ONCE; CYCLE 4
     Route: 042
     Dates: start: 20170124, end: 20170124
  42. ENDOXAN [Concomitant]
     Active Substance: CYCLOPHOSPHAMIDE
     Dosage: 939.38 MG, ONCE; CYCLE 3
     Route: 042
     Dates: start: 20170102, end: 20170102
  43. MABTHERA [Concomitant]
     Active Substance: RITUXIMAB
     Dosage: 630 MG, ONCE; CYCLE 2
     Route: 042
     Dates: start: 20161212, end: 20161212
  44. SOLONDO [Concomitant]
     Active Substance: PREDNISOLONE
     Dosage: 100 MG, QD
     Route: 048
     Dates: start: 20161115, end: 20161119
  45. KUNWONG ACETAMINOPHEN [Concomitant]
     Indication: PROPHYLAXIS
     Dosage: 600 MG, QID
     Route: 048
     Dates: start: 20170309, end: 20170309
  46. ZYLORIC [Concomitant]
     Active Substance: ALLOPURINOL
     Indication: PROPHYLAXIS
     Dosage: 100 MG, BID
     Route: 048
     Dates: start: 20170309, end: 20170315
  47. ZYLORIC [Concomitant]
     Active Substance: ALLOPURINOL
     Dosage: 100 MG, BID
     Route: 048
     Dates: start: 20161115, end: 20161121
  48. CARDIOXANE [Concomitant]
     Active Substance: DEXRAZOXANE HYDROCHLORIDE
     Indication: CARDIOVASCULAR EVENT PROPHYLAXIS
     Dosage: 500 MG, ONCE
     Route: 042
     Dates: start: 20170309, end: 20170309
  49. CARDIOXANE [Concomitant]
     Active Substance: DEXRAZOXANE HYDROCHLORIDE
     Dosage: 500 MG, ONCE
     Route: 042
     Dates: start: 20170102, end: 20170102
  50. LASIX [Concomitant]
     Active Substance: FUROSEMIDE
     Indication: PROPHYLAXIS
     Dosage: STRENGTH: 20MG/2ML; 20 MG, ONCE
     Route: 042
     Dates: start: 20170309, end: 20170309
  51. LASIX [Concomitant]
     Active Substance: FUROSEMIDE
     Dosage: STRENGTH: 20MG/2ML; 20 MG, ONCE
     Route: 042
     Dates: start: 20161213, end: 20161213
  52. LASIX [Concomitant]
     Active Substance: FUROSEMIDE
     Dosage: STRENGTH: 20MG/2ML; 20 MG, ONCE
     Route: 042
     Dates: start: 20170216, end: 20170216
  53. GASMOTIN [Concomitant]
     Active Substance: MOSAPRIDE CITRATE
     Dosage: 5 MG, TID
     Route: 048
     Dates: start: 20161212, end: 20161215
  54. RENEXIN [Concomitant]
     Indication: DIABETIC EYE DISEASE
     Dosage: 200 MG, QD
     Route: 048
  55. ILDON G ADRIAMYCIN [Concomitant]
     Dosage: 54.5 MG, ONCE; CYCLE 1
     Route: 042
     Dates: start: 20161115, end: 20161115
  56. ILDON G ADRIAMYCIN [Concomitant]
     Dosage: 62.63 MG, ONCE; CYCLE 3
     Route: 042
     Dates: start: 20170102, end: 20170102
  57. MABTHERA [Concomitant]
     Active Substance: RITUXIMAB
     Dosage: 645 MG, ONCE; CYCLE 1
     Route: 042
     Dates: start: 20161115, end: 20161115
  58. MABTHERA [Concomitant]
     Active Substance: RITUXIMAB
     Dosage: 633.75 MG, ONCE; CYCLE 4
     Route: 042
     Dates: start: 20170124, end: 20170124
  59. ALOXI [Concomitant]
     Active Substance: PALONOSETRON HYDROCHLORIDE
     Dosage: 0.25 MG, ONCE
     Route: 042
     Dates: start: 20170124, end: 20170124
  60. CARDIOXANE [Concomitant]
     Active Substance: DEXRAZOXANE HYDROCHLORIDE
     Dosage: 500 MG, ONCE
     Route: 042
     Dates: start: 20161212, end: 20161212
  61. OROSARTAN [Concomitant]
     Indication: HYPERTENSION
     Dosage: 1 TABLET, QD
     Route: 048
  62. NEURONTIN [Concomitant]
     Active Substance: GABAPENTIN
     Indication: PARAESTHESIA
     Dosage: 100 MG, TID
     Route: 048
     Dates: start: 20161215
  63. GASMOTIN [Concomitant]
     Active Substance: MOSAPRIDE CITRATE
     Dosage: 5 MG, TID
     Route: 048
     Dates: start: 20170124, end: 20170130
  64. EMEND (FOSAPREPITANT DIMEGLUMINE) [Suspect]
     Active Substance: FOSAPREPITANT DIMEGLUMINE
     Dosage: 150 MG, ONCE
     Route: 042
     Dates: start: 20170216, end: 20170216
  65. ENDOXAN [Concomitant]
     Active Substance: CYCLOPHOSPHAMIDE
     Dosage: 950.63 MG, ONCE; CYCLE 4
     Route: 042
     Dates: start: 20170124, end: 20170124
  66. MABTHERA [Concomitant]
     Active Substance: RITUXIMAB
     Indication: CHEMOTHERAPY
     Dosage: 641.25 MG, ONCE; CYCLE 6
     Route: 042
     Dates: start: 20170309, end: 20170309
  67. SOLONDO [Concomitant]
     Active Substance: PREDNISOLONE
     Dosage: 100 MG, QD
     Route: 048
     Dates: start: 20161212, end: 20161215
  68. ZYLORIC [Concomitant]
     Active Substance: ALLOPURINOL
     Dosage: 100 MG, BID
     Route: 048
     Dates: start: 20170124, end: 20170130
  69. CARDIOXANE [Concomitant]
     Active Substance: DEXRAZOXANE HYDROCHLORIDE
     Dosage: 500 MG, ONCE
     Route: 042
     Dates: start: 20161115, end: 20161115
  70. BARACLUDE [Concomitant]
     Active Substance: ENTECAVIR
     Indication: HEPATITIS B
     Dosage: 0.5 MG, QD
     Route: 048
  71. STILEN (MUGWORT) [Concomitant]
     Indication: PROPHYLAXIS
     Dosage: 60 MG, TID
     Route: 048
     Dates: start: 20161111
  72. GASMOTIN [Concomitant]
     Active Substance: MOSAPRIDE CITRATE
     Indication: PROPHYLAXIS
     Dosage: 5 MG, TID
     Route: 048
     Dates: start: 20170309, end: 20170315
  73. GASMOTIN [Concomitant]
     Active Substance: MOSAPRIDE CITRATE
     Dosage: 5 MG, TID
     Route: 048
     Dates: start: 20161115, end: 20161121
  74. EMEND (FOSAPREPITANT DIMEGLUMINE) [Suspect]
     Active Substance: FOSAPREPITANT DIMEGLUMINE
     Indication: PROPHYLAXIS OF NAUSEA AND VOMITING
     Dosage: 150 MG, ONCE
     Route: 042
     Dates: start: 20161115, end: 20161115
  75. EMEND (FOSAPREPITANT DIMEGLUMINE) [Suspect]
     Active Substance: FOSAPREPITANT DIMEGLUMINE
     Dosage: 150 MG, ONCE
     Route: 042
     Dates: start: 20161212, end: 20161212
  76. EMEND (FOSAPREPITANT DIMEGLUMINE) [Suspect]
     Active Substance: FOSAPREPITANT DIMEGLUMINE
     Dosage: 150 MG, ONCE
     Route: 042
     Dates: start: 20170102, end: 20170102
  77. EMEND (FOSAPREPITANT DIMEGLUMINE) [Suspect]
     Active Substance: FOSAPREPITANT DIMEGLUMINE
     Dosage: 150 MG, ONCE
     Route: 042
     Dates: start: 20170309, end: 20170309
  78. ENDOXAN [Concomitant]
     Active Substance: CYCLOPHOSPHAMIDE
     Indication: CHEMOTHERAPY
     Dosage: 961.88 MG, ONCE; CYCLE 6
     Route: 042
     Dates: start: 20170309, end: 20170309
  79. ENDOXAN [Concomitant]
     Active Substance: CYCLOPHOSPHAMIDE
     Dosage: 961.88 MG, ONCE; CYCLE 5
     Route: 042
     Dates: start: 20170309, end: 20170309
  80. ALOXI [Concomitant]
     Active Substance: PALONOSETRON HYDROCHLORIDE
     Indication: PROPHYLAXIS OF NAUSEA AND VOMITING
     Dosage: 0.25 MG, ONCE
     Route: 042
     Dates: start: 20170309, end: 20170309
  81. KUNWONG ACETAMINOPHEN [Concomitant]
     Dosage: 600 MG, QID
     Route: 048
     Dates: start: 20170216, end: 20170216
  82. ZYLORIC [Concomitant]
     Active Substance: ALLOPURINOL
     Dosage: 100 MG, BID
     Route: 048
     Dates: start: 20161212, end: 20161215
  83. ZYLORIC [Concomitant]
     Active Substance: ALLOPURINOL
     Dosage: 100 MG, BID
     Route: 048
     Dates: start: 20170216, end: 20170222

REACTIONS (1)
  - Pyrexia [Recovered/Resolved]

NARRATIVE: CASE EVENT DATE: 20170323
